FAERS Safety Report 8391245-7 (Version None)
Quarter: 2012Q2

REPORT INFORMATION
  Report Type: 
  Country: None (occurrence: None)
  Receive Date: 20120529
  Receipt Date: 20120523
  Transmission Date: 20120825
  Serious: Yes (Hospitalization)
  Sender: FDA-Public Use
  Company Number: US-JNJFOC-20120513001

PATIENT
  Sex: Male
  Weight: 82.56 kg

DRUGS (5)
  1. LITHIUM CARBONATE [Concomitant]
     Indication: BIPOLAR DISORDER
     Route: 065
     Dates: start: 19990101
  2. LEVAQUIN [Suspect]
     Indication: ARTHROPOD BITE
     Dosage: DRUG ADMINISTERED INTRAMUSCULARLY
     Route: 042
  3. LEVOFLOXACIN [Suspect]
     Indication: CONTUSION
     Route: 048
     Dates: start: 20110510, end: 20110511
  4. LEVAQUIN [Suspect]
     Dosage: INTRAVENOUS ADMINISTRATION
     Route: 042
  5. VESICARE [Concomitant]
     Indication: BLADDER DISORDER
     Route: 065

REACTIONS (8)
  - ABDOMINAL DISCOMFORT [None]
  - PRODUCT QUALITY ISSUE [None]
  - DRUG INEFFECTIVE [None]
  - NOCTURIA [None]
  - CONTUSION [None]
  - POLLAKIURIA [None]
  - INCORRECT ROUTE OF DRUG ADMINISTRATION [None]
  - OEDEMA PERIPHERAL [None]
